FAERS Safety Report 21905787 (Version 1)
Quarter: 2023Q1

REPORT INFORMATION
  Report Type: Spontaneous
  Country: FR (occurrence: FR)
  Receive Date: 20230124
  Receipt Date: 20230124
  Transmission Date: 20230417
  Serious: Yes (Hospitalization, Other)
  Sender: FDA-Public Use
  Company Number: None

PATIENT
  Age: 75 Year
  Sex: Female
  Weight: 58 kg

DRUGS (2)
  1. VEKLURY [Suspect]
     Active Substance: REMDESIVIR
     Indication: COVID-19
     Dosage: 100 MG J1 PUIS 200 MG J2 ? J5
     Route: 042
     Dates: start: 20230103, end: 20230103
  2. VEKLURY [Suspect]
     Active Substance: REMDESIVIR
     Dosage: 100 MG J1 PUIS 200 MG J2 ? J5
     Route: 042
     Dates: start: 20230104, end: 20230107

REACTIONS (2)
  - Transaminases increased [Recovering/Resolving]
  - Product prescribing error [Recovered/Resolved]

NARRATIVE: CASE EVENT DATE: 20230103
